FAERS Safety Report 5737911-0 (Version None)
Quarter: 2008Q2

REPORT INFORMATION
  Report Type: 
  Country: None (occurrence: None)
  Receive Date: 20080512
  Receipt Date: 20080512
  Transmission Date: 20081010
  Serious: Yes (Death)
  Sender: FDA-Public Use
  Company Number: None

PATIENT
  Sex: Male
  Weight: 104.7809 kg

DRUGS (6)
  1. SUNITINIB 37.5 MG , PFIZER [Suspect]
     Indication: GASTROINTESTINAL STROMAL TUMOUR
     Dosage: 37.5 MG DAILY PO
     Route: 048
     Dates: start: 20061101, end: 20080201
  2. CLONIDINE [Concomitant]
  3. BENAZEPRIL HYDROCHLORIDE [Concomitant]
  4. EXFORGE [Concomitant]
  5. FLOMAX [Concomitant]
  6. ESSENCE HERBAL TEA [Concomitant]

REACTIONS (2)
  - ACUTE HEPATIC FAILURE [None]
  - METASTASIS [None]
